FAERS Safety Report 7147338 (Version 8)
Quarter: 2016Q3

REPORT INFORMATION
  Report Type: Spontaneous
  Country: US (occurrence: US)
  Receive Date: 20091013
  Receipt Date: 20160711
  Transmission Date: 20161109
  Serious: Yes (Life-Threatening, Hospitalization, Disabling, Other)
  Sender: FDA-Public Use
  Company Number: US-BAYER-200935633NA

PATIENT
  Age: 19 Year
  Sex: Female
  Weight: 52 kg

DRUGS (11)
  1. CARVEDILOL. [Concomitant]
     Active Substance: CARVEDILOL
     Dosage: UNK UNK, QD
     Dates: start: 20090104
  2. PROTONIX [Concomitant]
     Active Substance: PANTOPRAZOLE SODIUM
  3. JEVITY [Concomitant]
     Active Substance: DIETARY SUPPLEMENT
  4. YAZ [Suspect]
     Active Substance: DROSPIRENONE\ETHINYL ESTRADIOL
     Indication: CONTRACEPTION
     Route: 048
     Dates: start: 2007, end: 2008
  5. FLAGYL [Concomitant]
     Active Substance: METRONIDAZOLE\METRONIDAZOLE HYDROCHLORIDE
     Indication: SEPSIS
  6. VALPROIC ACID. [Concomitant]
     Active Substance: VALPROIC ACID
     Indication: CONVULSION PROPHYLAXIS
  7. GENTAMICIN. [Concomitant]
     Active Substance: GENTAMICIN
  8. BACLOFEN. [Concomitant]
     Active Substance: BACLOFEN
  9. COREG [Concomitant]
     Active Substance: CARVEDILOL
  10. ZOSYN [Concomitant]
     Active Substance: PIPERACILLIN SODIUM\TAZOBACTAM SODIUM
  11. DIGOXIN [DIGOXIN] [Concomitant]
     Active Substance: DIGOXIN
     Dosage: UNK
     Dates: end: 20090104

REACTIONS (16)
  - Brain injury [None]
  - Mobility decreased [None]
  - Brain injury [None]
  - Quadriplegia [None]
  - Cardiac arrest [None]
  - Communication disorder [None]
  - Aphasia [None]
  - Activities of daily living impaired [None]
  - Cerebrovascular accident [None]
  - General physical health deterioration [None]
  - Paraplegia [None]
  - Embolism arterial [None]
  - Dependent personality disorder [None]
  - Dysarthria [None]
  - Hemiplegia [None]
  - Apallic syndrome [None]

NARRATIVE: CASE EVENT DATE: 20081102
